FAERS Safety Report 8535590-0 (Version None)
Quarter: 2012Q2

REPORT INFORMATION
  Report Type: 
  Country: None (occurrence: None)
  Receive Date: 20120412
  Receipt Date: 20100318
  Transmission Date: 20120825
  Serious: Yes (Hospitalization, Other)
  Sender: FDA-Public Use
  Company Number: PHHY2010US17465

PATIENT
  Age: 38 Year
  Sex: Male

DRUGS (10)
  1. COLACE (DOCUSATE SODIUM) [Concomitant]
  2. CLOZARIL [Suspect]
     Indication: SCHIZOAFFECTIVE DISORDER
     Dosage: 12.5 MG, BID 300 MG/DAY 100 MG/DAY 300 MG/DAY
     Dates: start: 20100217
  3. PRINIVIL [Concomitant]
  4. GLUCOTROL [Concomitant]
  5. LAMICTAL [Concomitant]
  6. NOVOLOG [Concomitant]
  7. LOPID [Concomitant]
  8. INDERAL LA [Concomitant]
  9. GLUCOPHAGE [Concomitant]
  10. KLONOPIN [Concomitant]

REACTIONS (2)
  - MALAISE [None]
  - ANTIPSYCHOTIC DRUG LEVEL INCREASED [None]
